FAERS Safety Report 4342742-2 (Version None)
Quarter: 2004Q2

REPORT INFORMATION
  Report Type: 
  Country: None (occurrence: None)
  Receive Date: 20040416
  Receipt Date: 20040401
  Transmission Date: 20050107
  Serious: No
  Sender: FDA-Public Use
  Company Number: A04200400301

PATIENT
  Sex: Female

DRUGS (1)
  1. QUENSYL - (HYDROXYCHLOROQUINE SULFATE) - TABLET - 200 MG [Suspect]
     Dosage: 100 MG OD   ORAL      A FEW DAYS
     Route: 048
     Dates: start: 20040326

REACTIONS (1)
  - RESPIRATORY FAILURE [None]
